FAERS Safety Report 8264771-9 (Version None)
Quarter: 2012Q2

REPORT INFORMATION
  Report Type: 
  Country: None (occurrence: None)
  Receive Date: 20120406
  Receipt Date: 20120329
  Transmission Date: 20120825
  Serious: Yes (Other)
  Sender: FDA-Public Use
  Company Number: ES-SANOFI-AVENTIS-2012SA022006

PATIENT
  Age: 48 Year
  Sex: Male
  Weight: 90 kg

DRUGS (20)
  1. FUROSEMIDE [Suspect]
     Route: 042
     Dates: start: 20110908, end: 20110926
  2. VESANOID [Interacting]
     Indication: ACUTE PROMYELOCYTIC LEUKAEMIA
     Route: 048
     Dates: start: 20110826, end: 20111007
  3. DAPTOMYCIN [Interacting]
     Route: 042
     Dates: start: 20110910, end: 20110914
  4. AMBISOME [Interacting]
     Route: 042
     Dates: start: 20110916, end: 20110926
  5. LACTULOSE [Interacting]
     Route: 048
     Dates: start: 20110831, end: 20110914
  6. MAXIPIME [Interacting]
     Route: 042
     Dates: start: 20110825, end: 20110903
  7. HIBOR [Interacting]
     Route: 058
     Dates: start: 20110907, end: 20110930
  8. POLARAMINE [Interacting]
     Route: 048
     Dates: start: 20110916, end: 20110922
  9. ORBENIN CAP [Interacting]
     Route: 048
     Dates: start: 20110831, end: 20110916
  10. LEVOFLOXACIN [Interacting]
     Indication: INFECTION
     Route: 048
     Dates: start: 20110918, end: 20110928
  11. ENOXAPARIN SODIUM [Interacting]
     Route: 058
     Dates: start: 20110825, end: 20110826
  12. ALLOPURINOL [Interacting]
     Route: 048
     Dates: start: 20110825, end: 20110908
  13. MEROPENEM [Interacting]
     Route: 042
     Dates: start: 20110905, end: 20110914
  14. ACETAMINOPHEN [Interacting]
     Route: 042
     Dates: start: 20110825, end: 20110908
  15. OMEPRAZOLE [Interacting]
     Route: 048
     Dates: start: 20110825, end: 20111007
  16. ACYCLOVIR [Interacting]
     Route: 042
     Dates: start: 20110911, end: 20110913
  17. TARGOCID [Interacting]
     Route: 042
     Dates: start: 20110906, end: 20110919
  18. UROKINASE [Interacting]
     Indication: ACUTE PROMYELOCYTIC LEUKAEMIA
     Route: 065
     Dates: start: 20110915, end: 20110915
  19. NOXAFIL [Interacting]
     Route: 048
     Dates: start: 20110902, end: 20110917
  20. PIPERACILLIN AND TAZOBACTAM [Interacting]
     Route: 042
     Dates: start: 20110914, end: 20110919

REACTIONS (1)
  - MYOSITIS [None]
